FAERS Safety Report 7573726-9 (Version None)
Quarter: 2011Q2

REPORT INFORMATION
  Report Type: 
  Country: None (occurrence: None)
  Receive Date: 20110627
  Receipt Date: 20110621
  Transmission Date: 20111010
  Serious: Yes (Other)
  Sender: FDA-Public Use
  Company Number: US-PFIZER INC-2011138121

PATIENT
  Sex: Male

DRUGS (2)
  1. LIPITOR [Suspect]
     Dosage: UNK
  2. TAMSULOSIN HCL [Suspect]
     Dosage: UNK

REACTIONS (2)
  - GAIT DISTURBANCE [None]
  - PAIN IN EXTREMITY [None]
